FAERS Safety Report 5008106-3 (Version None)
Quarter: 2006Q1

REPORT INFORMATION
  Report Type: 
  Country: None (occurrence: None)
  Receive Date: 20060331
  Receipt Date: 20050701
  Transmission Date: 20060701
  Serious: Yes (Hospitalization)
  Sender: FDA-Public Use
  Company Number: WAES 0507USA00250

PATIENT
  Age: 35 Year
  Sex: Male
  Weight: 88.905 kg

DRUGS (2)
  1. CANCIDAS [Suspect]
     Indication: CANDIDIASIS
     Dosage: 50 MG/DAILY/IV
     Route: 042
     Dates: start: 20050616, end: 20050703
  2. VANCOMYCIN [Concomitant]

REACTIONS (1)
  - PYREXIA [None]
